FAERS Safety Report 5382687-2 (Version None)
Quarter: 2007Q3

REPORT INFORMATION
  Report Type: 
  Country: None (occurrence: None)
  Receive Date: 20070710
  Receipt Date: 20070629
  Transmission Date: 20080115
  Serious: Yes (Death, Hospitalization)
  Sender: FDA-Public Use
  Company Number: FR-JNJFOC-20070606714

PATIENT
  Age: 90 Year
  Sex: Female

DRUGS (6)
  1. OFLOCET [Suspect]
     Indication: URINARY TRACT INFECTION
     Route: 048
  2. CEFTRAIXONE [Suspect]
     Indication: URINARY TRACT INFECTION
     Route: 042
  3. CIPROFLOXACIN HCL [Suspect]
     Indication: URINARY TRACT INFECTION
     Route: 048
  4. AMIKACIN [Concomitant]
     Indication: URINARY TRACT INFECTION
     Route: 042
  5. TAZOCILLINE [Concomitant]
     Indication: URINARY TRACT INFECTION
     Route: 042
  6. OROKEN [Concomitant]
     Indication: URINARY TRACT INFECTION
     Route: 065

REACTIONS (2)
  - ERYTHEMA [None]
  - RESPIRATORY DISTRESS [None]
